FAERS Safety Report 8925325 (Version 1)
Quarter: 2012Q4

REPORT INFORMATION
  Report Type: 
  Country: GB (occurrence: GB)
  Receive Date: 20121126
  Receipt Date: 20121126
  Transmission Date: 20130627
  Serious: Yes (Other)
  Sender: FDA-Public Use
  Company Number: GB-AMGEN-GBRSP2012074616

PATIENT
  Age: 62 Year
  Sex: Female

DRUGS (11)
  1. DENOSUMAB [Suspect]
     Indication: OSTEOPOROSIS
     Dosage: UNK
     Route: 058
     Dates: start: 20121105
  2. CALCIUM CARBONATE [Concomitant]
  3. CLENIL MODULITE [Concomitant]
  4. COLECALCIFEROL [Concomitant]
  5. LAXIDO [Concomitant]
     Route: 048
  6. MORPHINE SULPHATE [Concomitant]
     Route: 048
  7. OMEPRAZOLE [Concomitant]
  8. PARACETAMOL [Concomitant]
     Dosage: 1000 g, qid
  9. SALBUTAMOL [Concomitant]
     Dosage: 100 mug, UNK
  10. TRAMADOL HYDROCHLORIDE [Concomitant]
     Dosage: 100 mg, UNK
  11. ZOPICLONE [Concomitant]
     Dosage: 7.5 mg, qd

REACTIONS (2)
  - Lip swelling [Not Recovered/Not Resolved]
  - Swelling face [Not Recovered/Not Resolved]
